FAERS Safety Report 25166208 (Version 1)
Quarter: 2025Q2

REPORT INFORMATION
  Report Type: Spontaneous
  Country: KR (occurrence: KR)
  Receive Date: 20250407
  Receipt Date: 20250407
  Transmission Date: 20250717
  Serious: Yes (Other)
  Sender: ROCHE
  Company Number: KR-ROCHE-10000246220

PATIENT
  Sex: Female

DRUGS (1)
  1. AVASTIN [Suspect]
     Active Substance: BEVACIZUMAB
     Indication: Cervix carcinoma
     Route: 065

REACTIONS (6)
  - Urinary tract disorder [Unknown]
  - Stoma complication [Recovered/Resolved]
  - Inappropriate schedule of product administration [Unknown]
  - Upper gastrointestinal haemorrhage [Unknown]
  - Gastrointestinal disorder [Unknown]
  - Blood disorder [Unknown]
